FAERS Safety Report 16332265 (Version 1)
Quarter: 2019Q2

REPORT INFORMATION
  Report Type: Spontaneous
  Country: US (occurrence: US)
  Receive Date: 20190412
  Receipt Date: 20190412
  Transmission Date: 20190711
  Serious: Yes (Hospitalization)
  Sender: FDA-Public Use
  Company Number: None

PATIENT
  Age: 66 Year
  Sex: Male

DRUGS (1)
  1. METHOTREXATE. [Suspect]
     Active Substance: METHOTREXATE
     Indication: LYMPHOMA
     Dates: start: 20190326, end: 20190326

REACTIONS (11)
  - Vomiting [None]
  - Neuropathy peripheral [None]
  - Blood bilirubin increased [None]
  - Decreased appetite [None]
  - Neutropenia [None]
  - Pancytopenia [None]
  - Memory impairment [None]
  - Malaise [None]
  - Abdominal pain [None]
  - Diarrhoea [None]
  - Nausea [None]

NARRATIVE: CASE EVENT DATE: 20190402
